FAERS Safety Report 5614616-8 (Version None)
Quarter: 2008Q1

REPORT INFORMATION
  Report Type: 
  Country: None (occurrence: None)
  Receive Date: 20080131
  Receipt Date: 20080117
  Transmission Date: 20080703
  Serious: Yes (Death, Hospitalization)
  Sender: FDA-Public Use
  Company Number: 023049

PATIENT
  Age: 49 Year
  Sex: Male

DRUGS (3)
  1. IBUPROFEN [Suspect]
     Indication: OVERDOSE
     Dosage: CA. 1200 TABLETS OF 200 MG, ORAL
     Route: 048
  2. DEPAKOTE [Suspect]
  3. LEVOTHYROXINE SODIUM [Concomitant]

REACTIONS (27)
  - ABDOMINAL DISTENSION [None]
  - ALANINE AMINOTRANSFERASE INCREASED [None]
  - AMMONIA INCREASED [None]
  - ANION GAP INCREASED [None]
  - ASPARTATE AMINOTRANSFERASE INCREASED [None]
  - BLOOD CREATININE INCREASED [None]
  - BLOOD POTASSIUM INCREASED [None]
  - BLOOD PRESSURE DECREASED [None]
  - BLOOD UREA INCREASED [None]
  - BODY TEMPERATURE DECREASED [None]
  - COMA [None]
  - ELECTROCARDIOGRAM QT PROLONGED [None]
  - GASTROINTESTINAL SOUNDS ABNORMAL [None]
  - HAEMODIALYSIS [None]
  - HEART RATE INCREASED [None]
  - LUNG INFILTRATION [None]
  - MANIA [None]
  - METABOLIC ACIDOSIS [None]
  - MYDRIASIS [None]
  - NO THERAPEUTIC RESPONSE [None]
  - OVERDOSE [None]
  - PUPILLARY REFLEX IMPAIRED [None]
  - PYREXIA [None]
  - RESPIRATION ABNORMAL [None]
  - SINUS BRADYCARDIA [None]
  - VOMITING [None]
  - WHITE BLOOD CELL COUNT INCREASED [None]
